FAERS Safety Report 5690021-3 (Version None)
Quarter: 2008Q2

REPORT INFORMATION
  Report Type: 
  Country: None (occurrence: None)
  Receive Date: 20080401
  Receipt Date: 20080321
  Transmission Date: 20081010
  Serious: No
  Sender: FDA-Public Use
  Company Number: US-ELI_LILLY_AND_COMPANY-US200803005205

PATIENT
  Age: 11 Year
  Sex: Male

DRUGS (3)
  1. ZYPREXA [Suspect]
  2. RITALIN [Concomitant]
  3. ZOLOFT [Concomitant]

REACTIONS (2)
  - MOUTH ULCERATION [None]
  - PURPURA [None]
